FAERS Safety Report 23885721 (Version 2)
Quarter: 2024Q2

REPORT INFORMATION
  Report Type: Spontaneous
  Country: PT (occurrence: None)
  Receive Date: 20240522
  Receipt Date: 20240603
  Transmission Date: 20240716
  Serious: Yes (Other)
  Sender: FDA-Public Use
  Company Number: 2024A115243

PATIENT
  Age: 69 Year
  Sex: Female

DRUGS (10)
  1. OMEPRAZOLE [Interacting]
     Active Substance: DONEPEZIL HYDROCHLORIDE\OMEPRAZOLE\OMEPRAZOLE MAGNESIUM
     Indication: Helicobacter infection
     Route: 048
  2. CLARITHROMYCIN [Interacting]
     Active Substance: CLARITHROMYCIN
     Indication: Helicobacter infection
  3. AMOXICILLIN [Interacting]
     Active Substance: AMOXICILLIN
     Indication: Helicobacter infection
  4. SIMVASTATIN [Interacting]
     Active Substance: SIMVASTATIN
  5. INDAPAMIDE [Concomitant]
     Active Substance: INDAPAMIDE
  6. RAMIPRIL [Concomitant]
     Active Substance: RAMIPRIL
  7. ATENOLOL [Concomitant]
     Active Substance: ATENOLOL
  8. METFORMIN [Concomitant]
     Active Substance: METFORMIN HYDROCHLORIDE
  9. GLICLAZIDE [Concomitant]
     Active Substance: GLICLAZIDE
  10. ASPIRIN [Concomitant]
     Active Substance: ASPIRIN

REACTIONS (2)
  - Rhabdomyolysis [Recovering/Resolving]
  - Drug interaction [Unknown]
